FAERS Safety Report 21103897 (Version 10)
Quarter: 2023Q1

REPORT INFORMATION
  Report Type: Report from Study
  Country: MX (occurrence: MX)
  Receive Date: 20220720
  Receipt Date: 20230329
  Transmission Date: 20230418
  Serious: Yes (Hospitalization, Other)
  Sender: FDA-Public Use
  Company Number: MX-NOVARTISPH-NVSC2022MX163348

PATIENT
  Age: 53 Year
  Sex: Female

DRUGS (5)
  1. KISQALI [Suspect]
     Active Substance: RIBOCICLIB
     Indication: Breast cancer
     Dosage: UNK
     Route: 048
  2. B-VITAMINS [Concomitant]
     Indication: Product used for unknown indication
     Dosage: UNK
     Route: 065
  3. ACETAMINOPHEN [Concomitant]
     Active Substance: ACETAMINOPHEN
     Indication: Product used for unknown indication
     Dosage: UNK
     Route: 065
  4. LOSARTAN [Concomitant]
     Active Substance: LOSARTAN
     Indication: Product used for unknown indication
     Dosage: UNK
     Route: 065
  5. LORATADINE [Concomitant]
     Active Substance: LORATADINE
     Indication: Product used for unknown indication
     Dosage: UNK
     Route: 065

REACTIONS (41)
  - Muscle spasms [Not Recovered/Not Resolved]
  - Gait inability [Unknown]
  - Pain in extremity [Not Recovered/Not Resolved]
  - Metastases to spine [Unknown]
  - Bone pain [Unknown]
  - Back pain [Unknown]
  - Spinal cord disorder [Unknown]
  - Vein rupture [Unknown]
  - Limb injury [Unknown]
  - Haemorrhage [Unknown]
  - Paralysis [Unknown]
  - Benign breast neoplasm [Unknown]
  - Pain [Unknown]
  - Crying [Unknown]
  - Breast pain [Not Recovered/Not Resolved]
  - Influenza [Recovered/Resolved]
  - Productive cough [Recovered/Resolved]
  - Cough [Recovered/Resolved]
  - Feeling abnormal [Recovered/Resolved]
  - Blood pressure increased [Recovered/Resolved]
  - Blood pressure decreased [Recovered/Resolved]
  - Pyrexia [Recovered/Resolved]
  - Abdominal discomfort [Unknown]
  - COVID-19 [Unknown]
  - Weight decreased [Unknown]
  - Influenza [Unknown]
  - Illness [Unknown]
  - Feeling abnormal [Unknown]
  - Feelings of worthlessness [Unknown]
  - Bronchial disorder [Unknown]
  - Stress [Unknown]
  - Decreased immune responsiveness [Unknown]
  - Somnolence [Unknown]
  - Musculoskeletal chest pain [Unknown]
  - Swelling [Unknown]
  - Insomnia [Unknown]
  - Decreased appetite [Unknown]
  - Nausea [Unknown]
  - Fatigue [Unknown]
  - Cough [Not Recovered/Not Resolved]
  - Depression [Unknown]

NARRATIVE: CASE EVENT DATE: 20210101
